FAERS Safety Report 22018817 (Version 1)
Quarter: 2023Q1

REPORT INFORMATION
  Report Type: Other
  Country: None (occurrence: CN)
  Receive Date: 20230222
  Receipt Date: 20230222
  Transmission Date: 20230417
  Serious: Yes (Other)
  Sender: FDA-Public Use
  Company Number: CN-Innogenix, LLC-2138287

PATIENT
  Age: 75 Year
  Sex: Female

DRUGS (6)
  1. METRONIDAZOLE [Suspect]
     Active Substance: METRONIDAZOLE
     Indication: Amoebiasis
     Route: 042
  2. Moxifoxacin [Concomitant]
     Route: 065
  3. ISONIAZID [Concomitant]
     Active Substance: ISONIAZID
     Route: 048
  4. RIFAMPIN [Concomitant]
     Active Substance: RIFAMPIN
     Route: 048
  5. PYRAZINAMIDE [Concomitant]
     Active Substance: PYRAZINAMIDE
     Route: 048
  6. ETHAMBUTOL HYDROCHLORIDE [Concomitant]
     Active Substance: ETHAMBUTOL HYDROCHLORIDE
     Route: 048

REACTIONS (3)
  - Loss of consciousness [Unknown]
  - Nausea [Unknown]
  - Vomiting [Unknown]
